FAERS Safety Report 9858327 (Version 1)
Quarter: 2014Q1

REPORT INFORMATION
  Report Type: Spontaneous
  Country: US (occurrence: None)
  Receive Date: 20140130
  Receipt Date: 20140130
  Transmission Date: 20141002
  Serious: Yes (Life-Threatening, Hospitalization, Disabling)
  Sender: FDA-Public Use
  Company Number: None

PATIENT
  Age: 31 Year
  Sex: Male
  Weight: 104.33 kg

DRUGS (1)
  1. PROPECIA [Suspect]
     Indication: ALOPECIA
     Dosage: TAKEN BY MOUTH

REACTIONS (7)
  - Feeling abnormal [None]
  - Anxiety [None]
  - Dizziness [None]
  - Confusional state [None]
  - Amnesia [None]
  - Panic attack [None]
  - Sexual dysfunction [None]
